FAERS Safety Report 15889174 (Version 2)
Quarter: 2019Q1

REPORT INFORMATION
  Report Type: Spontaneous
  Country: US (occurrence: US)
  Receive Date: 20190130
  Receipt Date: 20190209
  Transmission Date: 20190417
  Serious: No
  Sender: FDA-Public Use
  Company Number: US-SHIRE-US201903112

PATIENT
  Sex: Female

DRUGS (2)
  1. NATPARA (PARATHYROID HORMONE) [Suspect]
     Active Substance: PARATHYROID HORMONE
     Indication: OFF LABEL USE
     Dosage: UNK, 3X/DAY:TID
     Route: 058
     Dates: start: 20180601
  2. NATPARA (PARATHYROID HORMONE) [Suspect]
     Active Substance: PARATHYROID HORMONE
     Indication: HYPOPARATHYROIDISM
     Dosage: 50 MICROGRAM, 1X/DAY:QD
     Route: 058
     Dates: start: 20180604

REACTIONS (5)
  - Fatigue [Recovering/Resolving]
  - Paraesthesia [Recovering/Resolving]
  - Off label use [Not Recovered/Not Resolved]
  - Product preparation issue [Unknown]
  - Muscle tightness [Recovering/Resolving]
